APPROVED DRUG PRODUCT: GRANISETRON HYDROCHLORIDE
Active Ingredient: GRANISETRON HYDROCHLORIDE
Strength: EQ 0.1MG BASE/ML (EQ 0.1MG BASE/ML)
Dosage Form/Route: INJECTABLE;INJECTION
Application: A078566 | Product #001
Applicant: WOCKHARDT USA INC
Approved: Feb 29, 2008 | RLD: No | RS: No | Type: DISCN